FAERS Safety Report 4446183-9 (Version None)
Quarter: 2004Q3

REPORT INFORMATION
  Report Type: 
  Country: None (occurrence: None)
  Receive Date: 20040903
  Receipt Date: 20040823
  Transmission Date: 20050211
  Serious: Yes (Hospitalization, Other)
  Sender: FDA-Public Use
  Company Number: 2004046448

PATIENT
  Age: 32 Year
  Sex: Male
  Weight: 114 kg

DRUGS (6)
  1. GEODON [Suspect]
     Indication: SCHIZOAFFECTIVE DISORDER
     Dosage: 200 MG (1 IN 1 D), ORAL
     Route: 048
     Dates: start: 20030826, end: 20040610
  2. IBUPROFEN [Concomitant]
  3. DIAZEPAM [Concomitant]
  4. CLONAZEPAM [Concomitant]
  5. VENLAFAXINE (VENLAFAXINE) [Concomitant]
  6. BUPROPION HCL [Concomitant]

REACTIONS (5)
  - DIZZINESS [None]
  - ELECTROCARDIOGRAM P WAVE ABNORMAL [None]
  - SINUS ARRHYTHMIA [None]
  - SINUS BRADYCARDIA [None]
  - SWOLLEN TONGUE [None]
